FAERS Safety Report 6543416-X (Version None)
Quarter: 2010Q1

REPORT INFORMATION
  Report Type: 
  Country: None (occurrence: None)
  Receive Date: 20100120
  Receipt Date: 20090324
  Transmission Date: 20100710
  Serious: No
  Sender: FDA-Public Use
  Company Number: US-KINGPHARMUSA00001-K200900342

PATIENT
  Age: 44 Year
  Sex: Female
  Weight: 54.422 kg

DRUGS (3)
  1. INTAL [Suspect]
     Indication: ASTHMA
     Dosage: UNK, QID
     Dates: start: 20080101
  2. ZYRTEC [Concomitant]
     Indication: SEASONAL ALLERGY
     Dosage: 10 MG, QD
     Route: 048
  3. ALBUTEROL [Concomitant]
     Indication: ASTHMA
     Dosage: UNK

REACTIONS (2)
  - BLOOD IMMUNOGLOBULIN G ABNORMAL [None]
  - COELIAC DISEASE [None]
